FAERS Safety Report 4416225-5 (Version None)
Quarter: 2004Q3

REPORT INFORMATION
  Report Type: 
  Country: None (occurrence: None)
  Receive Date: 20040803
  Receipt Date: 20040719
  Transmission Date: 20050211
  Serious: Yes (Hospitalization)
  Sender: FDA-Public Use
  Company Number: 04P-163-0267502-00

PATIENT
  Age: 75 Year
  Sex: Male
  Weight: 96.1626 kg

DRUGS (1)
  1. HUMIRA [Suspect]
     Indication: RHEUMATOID ARTHRITIS
     Dosage: 40 MG, 1 IN 2 WK, SUBCUTANEOUS
     Route: 058
     Dates: start: 20040201, end: 20040708

REACTIONS (4)
  - COLITIS ISCHAEMIC [None]
  - GANGRENE [None]
  - MYOCARDIAL INFARCTION [None]
  - VOMITING [None]
